FAERS Safety Report 8490647-8 (Version None)
Quarter: 2012Q3

REPORT INFORMATION
  Report Type: 
  Country: None (occurrence: None)
  Receive Date: 20120705
  Receipt Date: 20120628
  Transmission Date: 20120928
  Serious: No
  Sender: FDA-Public Use
  Company Number: JP-B.I. PHARMACEUTICALS,INC./RIDGEFIELD-2012-BP-06922NB

PATIENT
  Age: 82 Year
  Sex: Male

DRUGS (8)
  1. ADALAT CC [Concomitant]
     Indication: HYPERTENSION
     Dosage: 40 MG
     Route: 048
  2. BRONUCK [Concomitant]
     Route: 065
  3. RYSMON TG [Concomitant]
     Route: 065
  4. DETANTOL [Concomitant]
     Indication: HYPERTENSION
     Dosage: 1 MG
     Route: 048
  5. HYALEIN [Concomitant]
     Route: 065
  6. TRAZENTA [Suspect]
     Indication: DIABETES MELLITUS
     Dosage: 5 MG
     Route: 048
     Dates: start: 20120208, end: 20120223
  7. LASIX [Concomitant]
     Indication: HYPERTENSION
     Dosage: 20 MG
     Route: 048
     Dates: start: 20100412
  8. CANDESARTAN CILEXETIL [Concomitant]
     Indication: HYPERTENSION
     Dosage: 12 MG
     Route: 048

REACTIONS (1)
  - EYELID OEDEMA [None]
